FAERS Safety Report 7996891-8 (Version None)
Quarter: 2011Q4

REPORT INFORMATION
  Report Type: 
  Country: None (occurrence: None)
  Receive Date: 20111221
  Receipt Date: 20111220
  Transmission Date: 20120403
  Serious: Yes (Other)
  Sender: FDA-Public Use
  Company Number: US-SHIONOGI, INC-2011000283

PATIENT
  Age: 69 Year
  Sex: Male

DRUGS (1)
  1. NITROFURANTOIN [Suspect]

REACTIONS (1)
  - BLINDNESS [None]
